FAERS Safety Report 8210900-2 (Version None)
Quarter: 2012Q1

REPORT INFORMATION
  Report Type: 
  Country: None (occurrence: None)
  Receive Date: 20120227
  Receipt Date: 20111031
  Transmission Date: 20120608
  Serious: No
  Sender: FDA-Public Use
  Company Number: 338468

PATIENT
  Age: 58 Year
  Sex: Female

DRUGS (2)
  1. VICTOZA [Suspect]
     Indication: TYPE 2 DIABETES MELLITUS
     Dosage: 1.2 MG, , SUBCUTANEOUS, 1.8 MG, , SUBCUTANEOUS
     Route: 058
     Dates: start: 20110101
  2. VICTOZA [Suspect]
     Indication: TYPE 2 DIABETES MELLITUS
     Dosage: 1.2 MG, , SUBCUTANEOUS, 1.8 MG, , SUBCUTANEOUS
     Route: 058
     Dates: start: 20110101

REACTIONS (1)
  - GLYCOSYLATED HAEMOGLOBIN INCREASED [None]
